FAERS Safety Report 18525528 (Version 2)
Quarter: 2020Q4

REPORT INFORMATION
  Report Type: Report from Study
  Country: None (occurrence: US)
  Receive Date: 20201119
  Receipt Date: 20201209
  Transmission Date: 20210114
  Serious: Yes (Hospitalization)
  Sender: FDA-Public Use
  Company Number: US-ABBVIE-20K-163-3653991-00

PATIENT
  Age: 52 Year
  Sex: Female
  Weight: 88.98 kg

DRUGS (2)
  1. LEFLUNOMIDE. [Concomitant]
     Active Substance: LEFLUNOMIDE
     Indication: RHEUMATOID ARTHRITIS
  2. RINVOQ [Suspect]
     Active Substance: UPADACITINIB
     Indication: RHEUMATOID ARTHRITIS
     Route: 048
     Dates: start: 20200904

REACTIONS (6)
  - Lumbar radiculopathy [Not Recovered/Not Resolved]
  - Hypoaesthesia [Unknown]
  - Intervertebral disc protrusion [Not Recovered/Not Resolved]
  - Pain in extremity [Unknown]
  - Ligament rupture [Not Recovered/Not Resolved]
  - Monoparesis [Unknown]

NARRATIVE: CASE EVENT DATE: 2020
